FAERS Safety Report 5400176-3 (Version None)
Quarter: 2007Q3

REPORT INFORMATION
  Report Type: 
  Country: None (occurrence: None)
  Receive Date: 20070725
  Receipt Date: 20070713
  Transmission Date: 20080115
  Serious: Yes (Other)
  Sender: FDA-Public Use
  Company Number: GXKR2007GB06044

PATIENT
  Age: 42 Year
  Sex: Male

DRUGS (3)
  1. PREDNISOLONE [Suspect]
     Indication: CROHN'S DISEASE
  2. HAEMOFILTRATIOIN (NO INGREDIENTS SUBSTANCES) [Suspect]
     Indication: HAEMATOMA
  3. WARFARIN SODIUM [Concomitant]

REACTIONS (2)
  - CATHETER RELATED COMPLICATION [None]
  - THROMBOSIS IN DEVICE [None]
